FAERS Safety Report 8177990-7 (Version None)
Quarter: 2012Q1

REPORT INFORMATION
  Report Type: 
  Country: None (occurrence: None)
  Receive Date: 20120301
  Receipt Date: 20120228
  Transmission Date: 20120608
  Serious: Yes (Life-Threatening, Hospitalization)
  Sender: FDA-Public Use
  Company Number: FR-ABBOTT-12P-056-0909733-00

PATIENT
  Age: 55 Year
  Sex: Male

DRUGS (9)
  1. DEPAKENE [Suspect]
     Route: 048
     Dates: start: 20111227
  2. DEPAKENE [Suspect]
     Route: 048
     Dates: start: 20111215
  3. ATENOLOL [Concomitant]
     Indication: PRODUCT USED FOR UNKNOWN INDICATION
     Dates: end: 20111211
  4. DEPAKENE [Suspect]
     Route: 048
     Dates: start: 20120103, end: 20120103
  5. RAMIPRIL [Concomitant]
     Indication: PRODUCT USED FOR UNKNOWN INDICATION
     Dates: start: 20060101, end: 20111211
  6. DEPAKENE [Suspect]
     Route: 048
     Dates: start: 20111230
  7. DIGOXIN [Concomitant]
     Indication: PRODUCT USED FOR UNKNOWN INDICATION
     Dates: start: 20111215, end: 20120112
  8. DEPAKENE [Suspect]
     Route: 048
     Dates: start: 20111211
  9. DEPAKENE [Suspect]
     Indication: PRODUCT USED FOR UNKNOWN INDICATION
     Dosage: GASTRO-RESISTANT TABLET
     Route: 048
     Dates: start: 20110101

REACTIONS (5)
  - ENCEPHALOPATHY [None]
  - FALL [None]
  - PNEUMONIA ASPIRATION [None]
  - RHABDOMYOLYSIS [None]
  - RENAL FAILURE ACUTE [None]
